FAERS Safety Report 19919050 (Version 1)
Quarter: 2021Q4

REPORT INFORMATION
  Report Type: Spontaneous
  Country: US (occurrence: US)
  Receive Date: 20211005
  Receipt Date: 20211005
  Transmission Date: 20220303
  Serious: Yes (Other)
  Sender: FDA-Public Use
  Company Number: US-VALIDUS PHARMACEUTICALS LLC-US-VDP-2021-002637

PATIENT

DRUGS (2)
  1. DESIPRAMINE HYDROCHLORIDE [Suspect]
     Active Substance: DESIPRAMINE HYDROCHLORIDE
     Indication: Neuroendocrine carcinoma
     Dosage: 75 MG, NIGHTLY
     Route: 065
  2. DESIPRAMINE HYDROCHLORIDE [Suspect]
     Active Substance: DESIPRAMINE HYDROCHLORIDE
     Indication: Small cell lung cancer

REACTIONS (1)
  - Large intestinal obstruction [Unknown]
